FAERS Safety Report 22789612 (Version 4)
Quarter: 2024Q1

REPORT INFORMATION
  Report Type: Spontaneous
  Country: FR (occurrence: FR)
  Receive Date: 20230804
  Receipt Date: 20240122
  Transmission Date: 20240410
  Serious: Yes (Life-Threatening)
  Sender: FDA-Public Use
  Company Number: None

PATIENT
  Age: 64 Year
  Sex: Female

DRUGS (17)
  1. MIRTAZAPINE [Interacting]
     Active Substance: MIRTAZAPINE
     Indication: Pudendal canal syndrome
     Dosage: 45 MILLIGRAM, QD
     Route: 048
     Dates: start: 20230626, end: 20230626
  2. PREGABALIN [Interacting]
     Active Substance: PREGABALIN
     Indication: Pudendal canal syndrome
     Dosage: 600 MILLIGRAM, QD
     Route: 048
     Dates: start: 20230626
  3. ZOPICLONE [Interacting]
     Active Substance: ZOPICLONE
     Indication: Sleep disorder
     Dosage: 3.75 MILLIGRAM, QD
     Route: 048
     Dates: start: 20230626, end: 20230626
  4. ACETAMINOPHEN [Suspect]
     Active Substance: ACETAMINOPHEN
     Indication: Product used for unknown indication
     Dosage: 4 DOSAGE FORM, PRN (4 DF IN 1 AS NECESSARY)
     Route: 065
  5. ATARAX [Interacting]
     Active Substance: HYDROXYZINE HYDROCHLORIDE
     Indication: Pudendal canal syndrome
     Dosage: 3DOSAGE FORM,PRN(1NECESSARY)SCORED FILMCOATED TAB
     Route: 048
     Dates: start: 202306, end: 20230626
  6. CYAMEMAZINE [Interacting]
     Active Substance: CYAMEMAZINE
     Indication: Mixed anxiety and depressive disorder
     Dosage: 1.5 DOSAGE FORM, QD,SCORED FILMCOATED TABLET
     Route: 048
     Dates: start: 20230626, end: 20230626
  7. BROMAZEPAM [Interacting]
     Active Substance: BROMAZEPAM
     Indication: Mixed anxiety and depressive disorder
     Dosage: 4.5 MILLIGRAM, QD
     Route: 048
     Dates: start: 20230626, end: 20230626
  8. SPIRIVA [Concomitant]
     Active Substance: TIOTROPIUM BROMIDE MONOHYDRATE
     Indication: Product used for unknown indication
     Dosage: 18 MICROGRAM IN 1 DAY, FREQUENCY: 1.0.0  QD
     Route: 065
  9. ATORVASTATIN [Concomitant]
     Active Substance: ATORVASTATIN
     Indication: Product used for unknown indication
     Dosage: 40 MILLIGRAM, QD 40 MILLIGRAM IN 1 DAY, FREQUENCY
     Route: 065
  10. LEVOTHYROXINE [Concomitant]
     Active Substance: LEVOTHYROXINE\LEVOTHYROXINE SODIUM
     Indication: Product used for unknown indication
     Dosage: 75 MICROGRAM, QD 75 MICROGRAM IN 1 DAY, FREQUENCY
     Route: 065
  11. ESOMEPRAZOLE [Concomitant]
     Active Substance: ESOMEPRAZOLE
     Indication: Product used for unknown indication
     Dosage: 20 MILLIGRAM, QD 20 MILLIGRAM IN 1 DAY, FREQUENCY
     Route: 065
  12. SERETIDE [Concomitant]
     Active Substance: FLUTICASONE PROPIONATE\SALMETEROL XINAFOATE
     Indication: Product used for unknown indication
     Dosage: 500/50 UG, QD
     Route: 055
  13. POLYETHYLENE GLYCOL 4000 [Concomitant]
     Active Substance: POLYETHYLENE GLYCOL 4000
     Indication: Product used for unknown indication
     Dosage: FREQUENCY:3.0.0
     Route: 065
  14. FOSFOMYCIN [Concomitant]
     Active Substance: FOSFOMYCIN
     Indication: Cystitis escherichia
     Dosage: UNK
     Route: 065
  15. KARDEGIC [Concomitant]
     Active Substance: ASPIRIN DL-LYSINE
     Indication: Product used for unknown indication
     Dosage: 75 MILLIGRAM,QD,75 MILLIGRAM IN 1 DAY, FREQUENCY
     Route: 065
  16. ALBUTEROL [Concomitant]
     Active Substance: ALBUTEROL
     Indication: Product used for unknown indication
     Dosage: DOSE 2 PUFFS MORNING, NOON AND EVENING, AND AT NI
     Route: 065
  17. TROMETHAMINE [Concomitant]
     Active Substance: TROMETHAMINE
     Indication: Cystitis escherichia
     Dosage: UNK
     Route: 065

REACTIONS (5)
  - Respiratory acidosis [Recovered/Resolved]
  - Hypercapnia [Recovered/Resolved]
  - Drug interaction [Recovered/Resolved]
  - Chronic obstructive pulmonary disease [Recovered/Resolved]
  - Urinary tract infection [Unknown]

NARRATIVE: CASE EVENT DATE: 20230621
